FAERS Safety Report 13590465 (Version 1)
Quarter: 2017Q2

REPORT INFORMATION
  Report Type: Spontaneous
  Country: US (occurrence: US)
  Receive Date: 20170529
  Receipt Date: 20170529
  Transmission Date: 20170830
  Serious: No
  Sender: FDA-Public Use
  Company Number: US-JNJFOC-20170430670

PATIENT
  Sex: Female
  Weight: 60.78 kg

DRUGS (1)
  1. TRAMADOL HYDROCHLORIDE. [Suspect]
     Active Substance: TRAMADOL HYDROCHLORIDE
     Indication: VULVOVAGINAL DISCOMFORT
     Route: 065

REACTIONS (1)
  - Drug ineffective [Unknown]
